FAERS Safety Report 18311343 (Version 1)
Quarter: 2020Q3

REPORT INFORMATION
  Report Type: Spontaneous
  Country: US (occurrence: US)
  Receive Date: 20200924
  Receipt Date: 20200924
  Transmission Date: 20201103
  Serious: Yes (Other)
  Sender: FDA-Public Use
  Company Number: None

PATIENT
  Age: 67 Year
  Sex: Male
  Weight: 141.7 kg

DRUGS (13)
  1. REMDESIVIR. [Suspect]
     Active Substance: REMDESIVIR
     Indication: COVID-19
     Route: 041
  2. DEXAMETHASONE. [Concomitant]
     Active Substance: DEXAMETHASONE
     Dates: start: 20200915
  3. PROPOFOL. [Concomitant]
     Active Substance: PROPOFOL
     Dates: start: 20200917
  4. MIDAZOLAM. [Concomitant]
     Active Substance: MIDAZOLAM
     Dates: start: 20200917
  5. LABETALOL [Concomitant]
     Active Substance: LABETALOL\LABETALOL HYDROCHLORIDE
     Dates: start: 20200916, end: 20200917
  6. HEPARIN [Concomitant]
     Active Substance: HEPARIN SODIUM
     Dates: start: 20200917
  7. PANTOPRAZOLE [Concomitant]
     Active Substance: PANTOPRAZOLE
     Dates: start: 20200918
  8. SUCCINYLCHOLINE [Concomitant]
     Active Substance: SUCCINYLCHOLINE
     Dates: start: 20200917, end: 20200917
  9. AZITHROMYCIN ANHYDROUS. [Concomitant]
     Active Substance: AZITHROMYCIN ANHYDROUS
     Dates: start: 20200914, end: 20200918
  10. FENTANYL. [Concomitant]
     Active Substance: FENTANYL
     Dates: start: 20200918
  11. MORPHINE [Concomitant]
     Active Substance: MORPHINE
     Dates: start: 20200914, end: 20200920
  12. CEFTRIAXONE. [Concomitant]
     Active Substance: CEFTRIAXONE
     Dates: start: 20200914, end: 20200920
  13. ENOXAPARINE [Concomitant]
     Active Substance: ENOXAPARIN
     Dates: start: 20200914, end: 20200917

REACTIONS (5)
  - Therapy cessation [None]
  - Alanine aminotransferase increased [None]
  - Dialysis [None]
  - Transaminases increased [None]
  - Acute kidney injury [None]

NARRATIVE: CASE EVENT DATE: 20200920
